FAERS Safety Report 23819131 (Version 1)
Quarter: 2024Q2

REPORT INFORMATION
  Report Type: Spontaneous
  Country: US (occurrence: US)
  Receive Date: 20240506
  Receipt Date: 20240506
  Transmission Date: 20240716
  Serious: No
  Sender: FDA-Public Use
  Company Number: US-SA-SAC20240426001478

PATIENT
  Sex: Female
  Weight: 43.27 kg

DRUGS (11)
  1. DUPIXENT [Suspect]
     Active Substance: DUPILUMAB
     Indication: Dermatitis atopic
     Dosage: 300 MG, QOW
     Route: 058
  2. EZETIMIBE [Concomitant]
     Active Substance: EZETIMIBE
  3. CLOBETASOL PROPIONATE [Concomitant]
     Active Substance: CLOBETASOL PROPIONATE
  4. EUCRISA [Concomitant]
     Active Substance: CRISABOROLE
  5. COLACE [Concomitant]
     Active Substance: DOCUSATE SODIUM
  6. VITAMIN D3 [Concomitant]
     Active Substance: CHOLECALCIFEROL
  7. CALCIUM 600 PLUS VITAMIN D3 [Concomitant]
  8. ASPIRIN [Concomitant]
     Active Substance: ASPIRIN
  9. OMEPRAZOLE [Concomitant]
     Active Substance: OMEPRAZOLE
  10. SPIRONOLACTONE [Concomitant]
     Active Substance: SPIRONOLACTONE
  11. COZAAR [Concomitant]
     Active Substance: LOSARTAN POTASSIUM

REACTIONS (2)
  - Eczema [Unknown]
  - Dry skin [Unknown]
